FAERS Safety Report 7104223-2 (Version None)
Quarter: 2010Q4

REPORT INFORMATION
  Report Type: 
  Country: None (occurrence: None)
  Receive Date: 20101115
  Receipt Date: 20100609
  Transmission Date: 20110411
  Serious: No
  Sender: FDA-Public Use
  Company Number: US-ALLERGAN-1007548US

PATIENT
  Sex: Female

DRUGS (2)
  1. BOTOX COSMETIC [Suspect]
     Indication: SKIN WRINKLING
     Dosage: UNK, SINGLE
     Route: 030
     Dates: start: 20100406, end: 20100406
  2. JUVEDERM [Suspect]
     Indication: SKIN WRINKLING

REACTIONS (1)
  - ERYTHEMA [None]
